FAERS Safety Report 23117016 (Version 4)
Quarter: 2024Q1

REPORT INFORMATION
  Report Type: Spontaneous
  Country: US (occurrence: US)
  Receive Date: 20231027
  Receipt Date: 20240326
  Transmission Date: 20240410
  Serious: No
  Sender: FDA-Public Use
  Company Number: US-Ipsen Biopharmaceuticals, Inc.-2023-24392

PATIENT
  Age: 75 Year
  Sex: Female
  Weight: 82 kg

DRUGS (15)
  1. TAZVERIK [Suspect]
     Active Substance: TAZEMETOSTAT HYDROBROMIDE
     Indication: Follicular lymphoma stage I
     Dosage: 800 MG, TWICE DAILY
     Route: 048
  2. TAZVERIK [Suspect]
     Active Substance: TAZEMETOSTAT HYDROBROMIDE
  3. AMLODIPINE [Concomitant]
     Active Substance: AMLODIPINE BESYLATE
  4. COLACE [Concomitant]
     Active Substance: DOCUSATE SODIUM
  5. METHYLPREDNISOLONE [Concomitant]
     Active Substance: METHYLPREDNISOLONE
  6. MIRALAX [Concomitant]
     Active Substance: POLYETHYLENE GLYCOL 3350
  7. PROCHLORPERAZINE [Concomitant]
     Active Substance: PROCHLORPERAZINE
  8. VITAMIN D3 [Concomitant]
     Active Substance: CHOLECALCIFEROL
  9. TYLENOL [Concomitant]
     Active Substance: ACETAMINOPHEN
  10. UNITHROID [Concomitant]
     Active Substance: LEVOTHYROXINE SODIUM
  11. ZIAC [Concomitant]
     Active Substance: BISOPROLOL FUMARATE\HYDROCHLOROTHIAZIDE
  12. IMDUR [Concomitant]
     Active Substance: ISOSORBIDE MONONITRATE
  13. IRBESARTAN [Concomitant]
     Active Substance: IRBESARTAN
  14. BENDAMUSTINE [Concomitant]
     Active Substance: BENDAMUSTINE
  15. RITUXAN [Concomitant]
     Active Substance: RITUXIMAB
     Dosage: INTRAVENOUS
     Route: 042

REACTIONS (3)
  - Decreased appetite [Not Recovered/Not Resolved]
  - Hypertension [Not Recovered/Not Resolved]
  - Headache [Recovering/Resolving]
